FAERS Safety Report 6927657-5 (Version None)
Quarter: 2010Q3

REPORT INFORMATION
  Report Type: 
  Country: None (occurrence: None)
  Receive Date: 20100817
  Receipt Date: 20100811
  Transmission Date: 20110219
  Serious: Yes (Hospitalization)
  Sender: FDA-Public Use
  Company Number: US-B.I. PHARMACEUTICALS,INC./RIDGEFIELD-2010-BP-07953BP

PATIENT
  Sex: Female

DRUGS (9)
  1. SPIRIVA [Suspect]
     Indication: CHRONIC OBSTRUCTIVE PULMONARY DISEASE
     Dosage: 18 MCG
     Route: 055
     Dates: start: 20040101
  2. ADVAIR DISKUS 100/50 [Concomitant]
     Indication: CHRONIC OBSTRUCTIVE PULMONARY DISEASE
     Route: 055
  3. EVISTA [Concomitant]
     Indication: PROPHYLAXIS
     Route: 048
  4. AMBIEN [Concomitant]
     Indication: INSOMNIA
     Dosage: 10 MG
     Route: 048
  5. SYNTHROID [Concomitant]
     Indication: HYPERTHYROIDISM
     Dosage: 88 MG
     Route: 048
  6. AMITRIPTYLINE HYDROCHLORIDE [Concomitant]
  7. ANTIVERT [Concomitant]
     Dosage: WHEN NEEDED
  8. ZANTAC [Concomitant]
     Dosage: WHEN NEEDED
  9. XOPENEX [Concomitant]

REACTIONS (4)
  - DIVERTICULITIS [None]
  - FALL [None]
  - PAIN [None]
  - PATELLA FRACTURE [None]
